FAERS Safety Report 25269948 (Version 2)
Quarter: 2025Q2

REPORT INFORMATION
  Report Type: Spontaneous
  Country: DE (occurrence: DE)
  Receive Date: 20250505
  Receipt Date: 20250625
  Transmission Date: 20250717
  Serious: Yes (Other)
  Sender: MYLAN
  Company Number: DE-BRISTOL-MYERS SQUIBB COMPANY-2025-056754

PATIENT
  Age: 44 Year
  Sex: Female
  Weight: 77 kg

DRUGS (4)
  1. LENALIDOMIDE [Suspect]
     Active Substance: LENALIDOMIDE
     Indication: Plasma cell myeloma
  2. DEXAMETHASONE [Suspect]
     Active Substance: DEXAMETHASONE
     Indication: Plasma cell myeloma
  3. CARFILZOMIB [Suspect]
     Active Substance: CARFILZOMIB
     Indication: Plasma cell myeloma
  4. CARVYKTI [Concomitant]
     Active Substance: CILTACABTAGENE AUTOLEUCEL
     Indication: Product used for unknown indication

REACTIONS (1)
  - Plasma cell myeloma [Unknown]
